FAERS Safety Report 11063690 (Version 1)
Quarter: 2015Q2

REPORT INFORMATION
  Report Type: Spontaneous
  Country: US (occurrence: US)
  Receive Date: 20150424
  Receipt Date: 20150424
  Transmission Date: 20150821
  Serious: No
  Sender: FDA-Public Use
  Company Number: US-ALKERMES INC.-ALK-2014-003854

PATIENT

DRUGS (4)
  1. VIVITROL [Suspect]
     Active Substance: NALTREXONE
     Indication: ALCOHOLISM
     Dosage: 380 MG, UNK
     Route: 030
     Dates: start: 201404, end: 201404
  2. VIVITROL [Suspect]
     Active Substance: NALTREXONE
     Dosage: 380 MG, QMO
     Route: 030
     Dates: start: 20141028
  3. CHLOROPHYLL [Concomitant]
     Indication: GASTRIC DISORDER
     Dosage: UNK
  4. HERBAL EXTRACT NOS [Concomitant]
     Active Substance: HERBALS
     Indication: GASTRIC DISORDER
     Dosage: UNK

REACTIONS (7)
  - Gastric disorder [Not Recovered/Not Resolved]
  - Injection site reaction [Unknown]
  - Injection site pain [Recovered/Resolved]
  - Injection site mass [Unknown]
  - Incorrect drug administration duration [Recovered/Resolved]
  - Hyperhidrosis [Recovered/Resolved]
  - Hepatic enzyme increased [Unknown]

NARRATIVE: CASE EVENT DATE: 201404
